FAERS Safety Report 21863112 (Version 2)
Quarter: 2023Q1

REPORT INFORMATION
  Report Type: Report from Study
  Country: FR (occurrence: FR)
  Receive Date: 20230115
  Receipt Date: 20230119
  Transmission Date: 20230418
  Serious: Yes (Hospitalization, Other)
  Sender: FDA-Public Use
  Company Number: FR-AMGEN-FRACT2022221611

PATIENT
  Age: 66 Year
  Sex: Male
  Weight: 90 kg

DRUGS (2)
  1. SOTORASIB [Suspect]
     Active Substance: SOTORASIB
     Indication: Non-small cell lung cancer
     Dosage: 960 MILLIGRAM
     Route: 048
     Dates: start: 20221130, end: 20221211
  2. RMC-4630 [Suspect]
     Active Substance: RMC-4630
     Indication: Non-small cell lung cancer
     Dosage: 200 MILLIGRAM, QD
     Route: 048
     Dates: start: 20221130, end: 20221211

REACTIONS (2)
  - Dyspnoea [Not Recovered/Not Resolved]
  - Acute respiratory failure [Recovered/Resolved with Sequelae]

NARRATIVE: CASE EVENT DATE: 20221209
